FAERS Safety Report 16713491 (Version 1)
Quarter: 2019Q3

REPORT INFORMATION
  Report Type: Report from Study
  Country: None (occurrence: BR)
  Receive Date: 20190819
  Receipt Date: 20190819
  Transmission Date: 20191004
  Serious: Yes (Hospitalization, Other)
  Sender: FDA-Public Use
  Company Number: BR-ABBVIE-19K-020-2887838-00

PATIENT
  Age: 51 Year
  Sex: Male
  Weight: 85 kg

DRUGS (4)
  1. HUMIRA [Suspect]
     Active Substance: ADALIMUMAB
     Indication: RHEUMATOID ARTHRITIS
     Route: 058
     Dates: start: 20181124, end: 20190712
  2. TECNOMET [Concomitant]
     Active Substance: METHOTREXATE
     Indication: ADJUVANT THERAPY
     Dosage: 3 AT MORNING, 3 AT AFTERNOON ONCE A WEEK
     Route: 065
  3. PREDNISONE. [Concomitant]
     Active Substance: PREDNISONE
     Indication: ADJUVANT THERAPY
     Route: 065
  4. FOLIC [Concomitant]
     Active Substance: FOLIC ACID
     Indication: ADJUVANT THERAPY
     Dosage: 1 AT MORNING
     Route: 065

REACTIONS (8)
  - Neck pain [Unknown]
  - Back pain [Unknown]
  - Gastrointestinal neoplasm [Not Recovered/Not Resolved]
  - Immunodeficiency [Unknown]
  - Abdominal pain [Unknown]
  - Spinal osteoarthritis [Unknown]
  - Pyrexia [Recovered/Resolved]
  - Large intestinal ulcer [Unknown]

NARRATIVE: CASE EVENT DATE: 201906
